FAERS Safety Report 24564018 (Version 1)
Quarter: 2024Q4

REPORT INFORMATION
  Report Type: Spontaneous
  Country: US (occurrence: US)
  Receive Date: 20241030
  Receipt Date: 20241030
  Transmission Date: 20250114
  Serious: No
  Sender: BIOVITRUM
  Company Number: US-BIOVITRUM-2024-US-013637

PATIENT
  Age: 82 Year
  Sex: Female

DRUGS (1)
  1. KINERET [Suspect]
     Active Substance: ANAKINRA
     Indication: Product used for unknown indication
     Dosage: ONCE A DAY
     Route: 058
     Dates: start: 20240830

REACTIONS (7)
  - Ocular hyperaemia [Unknown]
  - Intraocular pressure increased [Unknown]
  - Eye swelling [Unknown]
  - Eye pruritus [Unknown]
  - Peripheral swelling [Unknown]
  - Malaise [Unknown]
  - Head discomfort [Unknown]
